FAERS Safety Report 14912367 (Version 3)
Quarter: 2018Q3

REPORT INFORMATION
  Report Type: Spontaneous
  Country: US (occurrence: US)
  Receive Date: 20180518
  Receipt Date: 20180920
  Transmission Date: 20181010
  Serious: Yes (Other)
  Sender: FDA-Public Use
  Company Number: US-ELI_LILLY_AND_COMPANY-US201804010927

PATIENT
  Age: 71 Year
  Sex: Female

DRUGS (4)
  1. METFORMIN [Concomitant]
     Active Substance: METFORMIN HYDROCHLORIDE
     Indication: PRODUCT USED FOR UNKNOWN INDICATION
     Dosage: 1000 MG, BID
  2. HUMULIN N [Suspect]
     Active Substance: INSULIN HUMAN
     Indication: TYPE 2 DIABETES MELLITUS
     Dosage: 70 U, EACH MORNING
     Route: 058
  3. HUMULIN N [Suspect]
     Active Substance: INSULIN HUMAN
     Dosage: 74 U, EACH EVENING
     Route: 058
  4. HUMULIN R [Suspect]
     Active Substance: INSULIN HUMAN
     Indication: TYPE 2 DIABETES MELLITUS
     Dosage: 27 U, BID, MORNING AND EVENING
     Route: 058

REACTIONS (11)
  - Intervertebral disc protrusion [Recovering/Resolving]
  - Fall [Unknown]
  - Pain [Recovering/Resolving]
  - Road traffic accident [Unknown]
  - Lower limb fracture [Recovering/Resolving]
  - Incorrect dose administered [Recovering/Resolving]
  - Lower limb fracture [Unknown]
  - Upper limb fracture [Unknown]
  - Blood glucose increased [Recovering/Resolving]
  - Amnesia [Recovering/Resolving]
  - Memory impairment [Unknown]

NARRATIVE: CASE EVENT DATE: 201604
